FAERS Safety Report 5422051-0 (Version None)
Quarter: 2007Q3

REPORT INFORMATION
  Report Type: 
  Country: None (occurrence: None)
  Receive Date: 20070820
  Receipt Date: 20070813
  Transmission Date: 20080115
  Serious: Yes (Death, Hospitalization)
  Sender: FDA-Public Use
  Company Number: 163-HUCBL-07080923

PATIENT
  Age: 11 Year
  Sex: Female
  Weight: 32 kg

DRUGS (9)
  1. HUMAN UMBILICAL CORD BLOOD (BLOOD, HETASTARCH, ELECTROLYTE SOLUTIONS) [Suspect]
     Indication: MYELODYSPLASTIC SYNDROME
     Dosage: 1 UNIT, INTRAVENOUS
     Route: 042
     Dates: start: 20050223, end: 20050223
  2. FLUDARABINE PHOSPHATE [Concomitant]
  3. BUSULFEX [Concomitant]
  4. MELPHALAN (MELPHALAN) [Concomitant]
  5. THYROGLOBULIN [Concomitant]
  6. AMIFOSTINE (AMIFOSTINE) [Concomitant]
  7. BENADRYL [Concomitant]
  8. ACETAMINOPHEN [Concomitant]
  9. MANNITOL [Concomitant]

REACTIONS (5)
  - ACUTE MYELOID LEUKAEMIA [None]
  - DISEASE PROGRESSION [None]
  - DISEASE RECURRENCE [None]
  - RESPIRATORY DISTRESS [None]
  - SEPTIC SHOCK [None]
